FAERS Safety Report 8689277 (Version 3)
Quarter: 2013Q1

REPORT INFORMATION
  Report Type: Spontaneous
  Country: US (occurrence: US)
  Receive Date: 20120727
  Receipt Date: 20130102
  Transmission Date: 20140127
  Serious: Yes (Other)
  Sender: FDA-Public Use
  Company Number: US-ASTRAZENECA-2011SE75859

PATIENT
  Age: 46 Year
  Sex: Female
  Weight: 72.6 kg

DRUGS (8)
  1. SEROQUEL XR [Suspect]
     Indication: SLEEP DISORDER
     Route: 048
  2. SEROQUEL XR [Suspect]
     Indication: MANIA
     Route: 048
  3. SEROQUEL XR [Suspect]
     Indication: BIPOLAR DISORDER
     Route: 048
  4. SEROQUEL XR [Suspect]
     Indication: SLEEP DISORDER
     Route: 048
  5. SEROQUEL XR [Suspect]
     Indication: MANIA
     Route: 048
  6. SEROQUEL XR [Suspect]
     Indication: BIPOLAR DISORDER
     Route: 048
  7. CELEXA [Concomitant]
     Indication: DEPRESSION
  8. ADVIL [Concomitant]

REACTIONS (9)
  - Foot deformity [Unknown]
  - Insomnia [Unknown]
  - Poor quality sleep [Unknown]
  - Middle insomnia [Unknown]
  - Dysstasia [Unknown]
  - Gout [Unknown]
  - Gait disturbance [Unknown]
  - Drug dose omission [Unknown]
  - Off label use [Unknown]
